FAERS Safety Report 9579605 (Version 2)
Quarter: 2013Q4

REPORT INFORMATION
  Report Type: Spontaneous
  Country: US (occurrence: US)
  Receive Date: 20131001
  Receipt Date: 20131001
  Transmission Date: 20140711
  Serious: No
  Sender: FDA-Public Use
  Company Number: US-AMGEN-USASP2013010337

PATIENT
  Age: 39 Year
  Sex: Male

DRUGS (1)
  1. ENBREL [Suspect]
     Indication: RHEUMATOID ARTHRITIS
     Dosage: UNK
     Route: 065
     Dates: start: 20121104, end: 2013

REACTIONS (5)
  - Rash [Recovered/Resolved]
  - Pain [Recovered/Resolved]
  - Nephrolithiasis [Recovered/Resolved]
  - Drug ineffective [Unknown]
  - Herpes zoster [Recovered/Resolved]
